FAERS Safety Report 10648864 (Version 3)
Quarter: 2015Q3

REPORT INFORMATION
  Report Type: Spontaneous
  Country: US (occurrence: US)
  Receive Date: 20141212
  Receipt Date: 20150929
  Transmission Date: 20151125
  Serious: No
  Sender: FDA-Public Use
  Company Number: US-SHIRE-US201400842

PATIENT
  Sex: Female

DRUGS (1)
  1. VPRIV [Suspect]
     Active Substance: VELAGLUCERASE ALFA
     Indication: GAUCHER^S DISEASE
     Dosage: 45 IU/KG, 1X/2WKS
     Route: 041
     Dates: start: 20111001

REACTIONS (2)
  - No adverse event [Recovered/Resolved]
  - Exposure during pregnancy [Recovered/Resolved]
